FAERS Safety Report 22302297 (Version 2)
Quarter: 2023Q2

REPORT INFORMATION
  Report Type: Report from Study
  Country: IT (occurrence: IT)
  Receive Date: 20230510
  Receipt Date: 20230511
  Transmission Date: 20230722
  Serious: Yes (Life-Threatening, Other)
  Sender: FDA-Public Use
  Company Number: IT-ABBVIE-4759121

PATIENT
  Age: 78 Year
  Sex: Male
  Weight: 68 kg

DRUGS (14)
  1. UPADACITINIB [Suspect]
     Active Substance: UPADACITINIB
     Indication: Rheumatoid arthritis
     Dosage: 15 MILLIGRAM
     Route: 048
     Dates: start: 20211028, end: 20230411
  2. CORTISONE [Concomitant]
     Active Substance: CORTISONE
     Indication: Rheumatoid arthritis
     Dosage: 4 MILLIGRAM
     Route: 048
     Dates: start: 20070101, end: 20220704
  3. CORTISONE [Concomitant]
     Active Substance: CORTISONE
     Indication: Rheumatoid arthritis
     Dosage: 4 MILLIGRAM
     Route: 048
     Dates: start: 20070101, end: 20220704
  4. LEVOTHYROXINE SODIUM [Concomitant]
     Active Substance: LEVOTHYROXINE SODIUM
     Indication: Autoimmune thyroiditis
     Dosage: 75 MICROGRAM
     Route: 048
     Dates: start: 20230509
  5. LEVOTHYROXINE SODIUM [Concomitant]
     Active Substance: LEVOTHYROXINE SODIUM
     Indication: Autoimmune thyroiditis
     Dosage: 75 MICROGRAM
     Route: 048
     Dates: start: 20230509
  6. CLOPIDOGREL [Concomitant]
     Active Substance: CLOPIDOGREL BISULFATE
     Indication: Atrial fibrillation
     Dosage: 75 GRAM
     Route: 048
     Dates: start: 20000105
  7. SARS-CoV-2 vaccine (vero cell), inactivada [Concomitant]
     Indication: COVID-19 immunisation
     Dates: start: 20211001, end: 20211001
  8. STREPTOCOCCUS PNEUMONIAE [Concomitant]
     Indication: Product used for unknown indication
     Dates: start: 20181001
  9. ALENDRONATE [Concomitant]
     Active Substance: ALENDRONATE SODIUM
     Indication: Osteoporosis
     Dosage: 70 MG
     Route: 048
     Dates: start: 20100722
  10. INFLUENZA VIRUS VACCINE [Concomitant]
     Active Substance: INFLUENZA VIRUS VACCINE
     Indication: Product used for unknown indication
     Dates: start: 20221201
  11. METHYLPREDNISOLONE [Concomitant]
     Active Substance: METHYLPREDNISOLONE
     Indication: Rheumatoid arthritis
     Dosage: 2 MILLIGRAM
     Route: 048
     Dates: start: 20221212
  12. METHYLPREDNISOLONE [Concomitant]
     Active Substance: METHYLPREDNISOLONE
     Indication: Rheumatoid arthritis
     Dosage: 3 MILLIGRAM
     Route: 048
     Dates: start: 20220707, end: 20221212
  13. PANTOPRAZOLE [Concomitant]
     Active Substance: PANTOPRAZOLE
     Indication: Prophylaxis
     Dosage: 40 MG
     Route: 048
     Dates: start: 20170101
  14. FOLIC ACID [Concomitant]
     Active Substance: FOLIC ACID
     Indication: Prophylaxis
     Dosage: 5 MG
     Route: 048
     Dates: start: 20100901

REACTIONS (1)
  - Transient ischaemic attack [Recovered/Resolved]

NARRATIVE: CASE EVENT DATE: 20230411
